FAERS Safety Report 22242349 (Version 1)
Quarter: 2023Q2

REPORT INFORMATION
  Report Type: Report from Study
  Country: DE (occurrence: DE)
  Receive Date: 20230422
  Receipt Date: 20230422
  Transmission Date: 20230721
  Serious: Yes (Life-Threatening, Hospitalization, Other)
  Sender: FDA-Public Use
  Company Number: None

PATIENT
  Age: 79 Year
  Sex: Female
  Weight: 56 kg

DRUGS (20)
  1. LETROZOLE [Suspect]
     Active Substance: LETROZOLE
     Indication: Hormone receptor positive HER2 negative breast cancer
     Dosage: 2.5 MG, QD
     Dates: start: 20190704, end: 20190819
  2. RIBOCICLIB [Suspect]
     Active Substance: RIBOCICLIB
     Indication: Hormone receptor positive HER2 negative breast cancer
     Dosage: 600 MG, QD (ADMINISTRATION SCHEME 21 DAYS INTAKE, 7 DAYS PAUSE)
     Dates: start: 20190704, end: 20190717
  3. PALBOCICLIB [Suspect]
     Active Substance: PALBOCICLIB
     Indication: Breast cancer metastatic
     Dosage: 100 MG, QD (SCHEME 21 DAYS INTAKE, 7 DAYS PAUSE)
     Dates: start: 20210909, end: 20211103
  4. TORSEMIDE [Suspect]
     Active Substance: TORSEMIDE
     Indication: Atrial fibrillation
     Dosage: 10 MG (A HALF IN THE MORNING)
     Dates: start: 20200727, end: 20220901
  5. CALCIUM [Concomitant]
     Active Substance: CALCIUM
     Indication: Product used for unknown indication
     Dosage: 400 MG, QD (ONCE PER DAY AT NOON)
     Dates: start: 2016
  6. CHOLECALCIFEROL [Concomitant]
     Active Substance: CHOLECALCIFEROL
     Indication: Product used for unknown indication
     Dosage: 20000 IU, QMO (MONTHLY)
     Dates: start: 2016
  7. BISOPROLOL [Concomitant]
     Active Substance: BISOPROLOL
     Indication: Product used for unknown indication
     Dosage: 0.5 DF (10/25 MG), QD (ONCE PER DAY IN THE MORNING)
     Dates: start: 2000
  8. AMLODIPINE BESYLATE\OLMESARTAN MEDOXOMIL [Concomitant]
     Active Substance: AMLODIPINE BESYLATE\OLMESARTAN MEDOXOMIL
     Indication: Product used for unknown indication
     Dosage: 40 MG, QD (ONCE PER DAY IN THE MORNING)
     Dates: start: 2019
  9. ASPIRIN [Concomitant]
     Active Substance: ASPIRIN
     Indication: Product used for unknown indication
     Dosage: 100 MG, QD (ONCE PER DAY AT NOON)
     Dates: start: 2000
  10. LEVOTHYROXINE [Concomitant]
     Active Substance: LEVOTHYROXINE
     Indication: Product used for unknown indication
     Dosage: 88 UG, QD (ONCE PER DAY IN THE MORINING)
     Dates: start: 2011
  11. NOVALGIN [Concomitant]
     Indication: Product used for unknown indication
     Dosage: 500 MG, PRN
     Dates: start: 201904
  12. PALBOCICLIB [Suspect]
     Active Substance: PALBOCICLIB
     Indication: Breast cancer metastatic
     Dosage: 75 MG, QD (SCHEME 21 DAYS INTAKE, 7 DAYS PAUSE)
     Dates: start: 20221116, end: 20221129
  13. PALBOCICLIB [Suspect]
     Active Substance: PALBOCICLIB
     Indication: Breast cancer metastatic
     Dosage: 100 MG, QD (SCHEME 21 DAYS INTAKE, 7 DAYS PAUSE)
     Dates: start: 20200812, end: 20210907
  14. PALBOCICLIB [Suspect]
     Active Substance: PALBOCICLIB
     Indication: Breast cancer metastatic
     Dosage: 100 MG, QD (SCHEME 21 DAYS INTAKE, 7 DAYS PAUSE)
     Dates: start: 20211111, end: 20220823
  15. PALBOCICLIB [Suspect]
     Active Substance: PALBOCICLIB
     Indication: Breast cancer metastatic
     Dosage: 100 MG, QD (SCHEME 21 DAYS INTAKE, 7 DAYS PAUSE)
     Dates: end: 20200601
  16. PALBOCICLIB [Suspect]
     Active Substance: PALBOCICLIB
     Indication: Breast cancer metastatic
     Dosage: 75 MG, QD (SCHEME 21 DAYS INTAKE, 7 DAYS PAUSE)
     Dates: start: 20220901, end: 20221102
  17. PALBOCICLIB [Suspect]
     Active Substance: PALBOCICLIB
     Indication: Breast cancer metastatic
     Dosage: 100 MG, QD (STARTED ON 14 JAN 2020, CYCLIC (SCHEME 21 DAYS INTAKE, 7 DAYS?PAUSE)
  18. PALBOCICLIB [Suspect]
     Active Substance: PALBOCICLIB
     Indication: Breast cancer metastatic
     Dosage: 100 MG, QD (SCHEME 21 DAYS INTAKE, 7 DAYS PAUSE)
     Dates: start: 20200603, end: 20200728
  19. PALBOCICLIB [Suspect]
     Active Substance: PALBOCICLIB
     Indication: Breast cancer metastatic
     Dosage: 75 MG, QD (SCHEME 21 DAYS INTAKE, 7 DAYS PAUSE)
     Dates: start: 20221207
  20. RIBOCICLIB [Suspect]
     Active Substance: RIBOCICLIB
     Indication: Hormone receptor positive HER2 negative breast cancer
     Dosage: 400 MG, QD (ADMINISTRATION SCHEME 21 DAYS INTAKE, 7 DAYS PAUSE)
     Dates: start: 20190808, end: 20190808

REACTIONS (22)
  - Vomiting [Recovered/Resolved]
  - Bronchitis [Recovered/Resolved]
  - Anaemia [Recovering/Resolving]
  - Leukopenia [Recovering/Resolving]
  - Concomitant disease aggravated [Recovering/Resolving]
  - Cystitis [Recovered/Resolved]
  - Eastern Cooperative Oncology Group performance status worsened [Recovered/Resolved]
  - Hypertension [Recovered/Resolved]
  - Neutropenia [Recovering/Resolving]
  - Blood creatinine increased [Not Recovered/Not Resolved]
  - Hyponatraemia [Not Recovered/Not Resolved]
  - Renal failure [Recovering/Resolving]
  - Blood glucose increased [Recovering/Resolving]
  - Thrombocytopenia [Recovering/Resolving]
  - Cardiac failure [Not Recovered/Not Resolved]
  - Atrial fibrillation [Recovering/Resolving]
  - Nausea [Recovered/Resolved]
  - Dry skin [Recovering/Resolving]
  - Renal impairment [Not Recovered/Not Resolved]
  - Electrocardiogram QT prolonged [Recovered/Resolved]
  - General physical health deterioration [Recovered/Resolved]
  - Dyspnoea [Not Recovered/Not Resolved]

NARRATIVE: CASE EVENT DATE: 20190716
